FAERS Safety Report 4425445-5 (Version None)
Quarter: 2004Q3

REPORT INFORMATION
  Report Type: 
  Country: None (occurrence: None)
  Receive Date: 20040813
  Receipt Date: 20040809
  Transmission Date: 20050211
  Serious: Yes (Other)
  Sender: FDA-Public Use
  Company Number: PHBS2004BR10504

PATIENT
  Sex: Female

DRUGS (1)
  1. TEGRETOL [Suspect]
     Indication: EPILEPSY
     Dosage: 400 MG/DAY
     Route: 048
     Dates: start: 20040101

REACTIONS (2)
  - BREAST DYSPLASIA [None]
  - UTERINE HAEMORRHAGE [None]
